FAERS Safety Report 8593371-6 (Version None)
Quarter: 2012Q3

REPORT INFORMATION
  Report Type: 
  Country: None (occurrence: None)
  Receive Date: 20120814
  Receipt Date: 20120810
  Transmission Date: 20120928
  Serious: No
  Sender: FDA-Public Use
  Company Number: US-PFIZER INC-2012196162

PATIENT
  Sex: Female

DRUGS (1)
  1. LIPITOR [Suspect]
     Dosage: UNK
     Dates: start: 20120701

REACTIONS (4)
  - ASTHMA [None]
  - FIBROMYALGIA [None]
  - AFFECTIVE DISORDER [None]
  - HEART RATE IRREGULAR [None]
